FAERS Safety Report 4807166-X (Version None)
Quarter: 2005Q4

REPORT INFORMATION
  Report Type: 
  Country: None (occurrence: None)
  Receive Date: 20051020
  Receipt Date: 20051006
  Transmission Date: 20060501
  Serious: Yes (Other)
  Sender: FDA-Public Use
  Company Number: 2005135159

PATIENT
  Sex: Female

DRUGS (1)
  1. MINOXIDIL [Suspect]
     Indication: ALOPECIA
     Dosage: ONE ML TWICE DAILY TOPICAL
     Route: 061
     Dates: start: 20050828, end: 20050916

REACTIONS (10)
  - AURICULAR SWELLING [None]
  - BLOOD IMMUNOGLOBULIN E INCREASED [None]
  - ECZEMA [None]
  - GRANULOCYTOSIS [None]
  - LEUKOCYTOSIS [None]
  - LYMPHOPENIA [None]
  - PRURITUS [None]
  - RASH [None]
  - RED BLOOD CELL SEDIMENTATION RATE INCREASED [None]
  - SWELLING FACE [None]
